FAERS Safety Report 11864436 (Version 2)
Quarter: 2016Q1

REPORT INFORMATION
  Report Type: Spontaneous
  Country: DE (occurrence: DE)
  Receive Date: 20151223
  Receipt Date: 20160112
  Transmission Date: 20160526
  Serious: Yes (Other)
  Sender: FDA-Public Use
  Company Number: DE-ASTELLAS-2015US039879

PATIENT
  Age: 74 Year
  Sex: Female

DRUGS (1)
  1. VESIKUR [Suspect]
     Active Substance: SOLIFENACIN SUCCINATE
     Indication: URGE INCONTINENCE
     Route: 048
     Dates: start: 20151023, end: 20151024

REACTIONS (4)
  - Oral mucosal blistering [Recovered/Resolved]
  - Mouth ulceration [Not Recovered/Not Resolved]
  - Hypersensitivity [Recovered/Resolved]
  - Laryngeal oedema [Recovered/Resolved]

NARRATIVE: CASE EVENT DATE: 20151023
